FAERS Safety Report 23924521 (Version 2)
Quarter: 2024Q2

REPORT INFORMATION
  Report Type: Spontaneous
  Country: US (occurrence: None)
  Receive Date: 20240531
  Receipt Date: 20240613
  Transmission Date: 20240716
  Serious: Yes (Other)
  Sender: FDA-Public Use
  Company Number: US-INFO-20240141

PATIENT
  Age: 67 Year
  Sex: Female

DRUGS (4)
  1. NOREPINEPHRINE [Suspect]
     Active Substance: NOREPINEPHRINE\NOREPINEPHRINE BITARTRATE
     Dosage: ()
  2. EPINEPHRINE [Concomitant]
     Active Substance: EPINEPHRINE
  3. VASOPRESSIN [Concomitant]
     Active Substance: VASOPRESSIN
  4. PROPOFOL [Concomitant]
     Active Substance: PROPOFOL

REACTIONS (3)
  - Hypotension [Unknown]
  - Product packaging issue [Unknown]
  - Incorrect dose administered [Unknown]
